FAERS Safety Report 10338817 (Version 2)
Quarter: 2014Q3

REPORT INFORMATION
  Report Type: Report from Study
  Country: NZ (occurrence: NZ)
  Receive Date: 20140724
  Receipt Date: 20140724
  Transmission Date: 20150326
  Serious: Yes (Other)
  Sender: FDA-Public Use
  Company Number: PHHY2014NZ079812

PATIENT
  Age: 30 Year
  Sex: Male
  Weight: 80.1 kg

DRUGS (3)
  1. CLOZARIL [Suspect]
     Active Substance: CLOZAPINE
     Dosage: 75 MG AT 5 PM AND 350 MG AT 9 PMUNK
     Route: 048
     Dates: start: 20100128
  2. CLOZARIL [Suspect]
     Active Substance: CLOZAPINE
     Dosage: UKN
     Route: 048
     Dates: start: 20061206
  3. BENZTROPINE MESYLATE. [Concomitant]
     Active Substance: BENZTROPINE MESYLATE
     Dosage: 2 MG AT NIGHT
     Route: 048
     Dates: start: 20100128

REACTIONS (2)
  - Dyspnoea [Unknown]
  - Salivary hypersecretion [Not Recovered/Not Resolved]

NARRATIVE: CASE EVENT DATE: 20140626
